FAERS Safety Report 10154919 (Version 2)
Quarter: 2014Q2

REPORT INFORMATION
  Report Type: Spontaneous
  Country: IT (occurrence: IT)
  Receive Date: 20140506
  Receipt Date: 20140512
  Transmission Date: 20141212
  Serious: Yes (Hospitalization)
  Sender: FDA-Public Use
  Company Number: IT-BAYER-2014-062296

PATIENT
  Age: 21 Year
  Sex: Male

DRUGS (2)
  1. GADOVIST [Suspect]
     Indication: NUCLEAR MAGNETIC RESONANCE IMAGING
     Dosage: 14 ML, ONCE
     Route: 042
     Dates: start: 20140423, end: 20140423
  2. ENALAPRIL [Concomitant]
     Indication: HYPERTENSION
     Dosage: DAILY DOSE 20 MG
     Route: 048

REACTIONS (8)
  - Presyncope [Recovered/Resolved]
  - Headache [Recovered/Resolved]
  - Vomiting [Recovered/Resolved]
  - Dyspnoea [Recovered/Resolved]
  - Vasoconstriction [Recovered/Resolved]
  - Psychomotor hyperactivity [Recovered/Resolved]
  - Acute pulmonary oedema [Recovered/Resolved]
  - Nausea [Recovered/Resolved]
